FAERS Safety Report 13663794 (Version 3)
Quarter: 2017Q3

REPORT INFORMATION
  Report Type: Spontaneous
  Country: US (occurrence: US)
  Receive Date: 20170619
  Receipt Date: 20170717
  Transmission Date: 20171127
  Serious: No
  Sender: FDA-Public Use
  Company Number: US-PFIZER INC-2017266156

PATIENT
  Age: 66 Year
  Sex: Female

DRUGS (3)
  1. DEXAMETHASONE. [Concomitant]
     Active Substance: DEXAMETHASONE
     Indication: PREMEDICATION
     Dosage: 10 MG (ONCE)
     Route: 042
     Dates: start: 20170106, end: 20170106
  2. DEXTROSE 5% [Concomitant]
     Active Substance: DEXTROSE
     Indication: VEHICLE SOLUTION USE
     Dosage: 250 ML (EVERY 21 DAYS)
     Route: 041
     Dates: start: 20170106
  3. PACLITAXEL. [Suspect]
     Active Substance: PACLITAXEL
     Indication: BREAST CANCER
     Dosage: 250 ML, 99MG DILUTED IN 250 ML OF DEXTROSE 5% AT A RATE OF 250ML/HOUR (D5W IV EVERY 21 DAYS)
     Route: 041
     Dates: start: 20170106

REACTIONS (3)
  - Anxiety [Recovered/Resolved]
  - Dizziness [Recovered/Resolved]
  - Nausea [Recovered/Resolved]

NARRATIVE: CASE EVENT DATE: 20170106
